FAERS Safety Report 4752529-4 (Version None)
Quarter: 2005Q3

REPORT INFORMATION
  Report Type: 
  Country: None (occurrence: None)
  Receive Date: 20050825
  Receipt Date: 20050815
  Transmission Date: 20060218
  Serious: Yes (Other)
  Sender: FDA-Public Use
  Company Number: US-BRISTOL-MYERS SQUIBB COMPANY-13078514

PATIENT
  Age: 43 Year
  Sex: Male
  Weight: 136 kg

DRUGS (3)
  1. KENALOG [Suspect]
     Indication: BACK INJURY
     Route: 008
     Dates: start: 20040201, end: 20040201
  2. ADVIL [Concomitant]
  3. MUSCLE RELAXANT [Concomitant]

REACTIONS (1)
  - RETINAL DETACHMENT [None]
